FAERS Safety Report 4980886-2 (Version None)
Quarter: 2006Q2

REPORT INFORMATION
  Report Type: 
  Country: None (occurrence: None)
  Receive Date: 20060424
  Receipt Date: 20051214
  Transmission Date: 20061013
  Serious: Yes (Hospitalization, Disabling)
  Sender: FDA-Public Use
  Company Number: US-MERCK-0512USA02356

PATIENT
  Age: 52 Year
  Sex: Male
  Weight: 125 kg

DRUGS (11)
  1. VIOXX [Suspect]
     Indication: ARTHRITIS
     Route: 048
     Dates: start: 20000311, end: 20040726
  2. VIOXX [Suspect]
     Route: 048
     Dates: start: 20000311, end: 20040726
  3. VIOXX [Suspect]
     Indication: OSTEOARTHRITIS
     Route: 048
     Dates: start: 20000311, end: 20040726
  4. VIOXX [Suspect]
     Route: 048
     Dates: start: 20000311, end: 20040726
  5. NEXIUM [Concomitant]
     Indication: GASTROOESOPHAGEAL REFLUX DISEASE
     Route: 065
  6. LASIX [Concomitant]
     Indication: OEDEMA PERIPHERAL
     Route: 065
  7. WELLBUTRIN [Concomitant]
     Indication: DEPRESSION
     Route: 065
  8. ASPIRIN [Concomitant]
     Route: 048
  9. HYDROCHLOROTHIAZIDE [Concomitant]
     Route: 048
  10. TYLENOL (CAPLET) [Concomitant]
     Indication: OSTEOARTHRITIS
     Route: 065
  11. EFFEXOR [Concomitant]
     Indication: DEPRESSION
     Route: 065

REACTIONS (15)
  - ABDOMINAL STRANGULATED HERNIA [None]
  - ANGINA UNSTABLE [None]
  - BLOOD CHOLESTEROL INCREASED [None]
  - CEREBROVASCULAR ACCIDENT [None]
  - CHEST PAIN [None]
  - CHRONIC OBSTRUCTIVE PULMONARY DISEASE [None]
  - CORONARY ARTERY DISEASE [None]
  - CORONARY ARTERY OCCLUSION [None]
  - DEPRESSION [None]
  - DERMATITIS CONTACT [None]
  - EPISTAXIS [None]
  - GASTROINTESTINAL DISORDER [None]
  - HYPERTENSION [None]
  - HYPOTENSION [None]
  - MYOCARDIAL INFARCTION [None]
